FAERS Safety Report 6706571-4 (Version None)
Quarter: 2010Q2

REPORT INFORMATION
  Report Type: 
  Country: None (occurrence: None)
  Receive Date: 20100503
  Receipt Date: 20100423
  Transmission Date: 20101027
  Serious: Yes (Hospitalization)
  Sender: FDA-Public Use
  Company Number: DE-ROCHE-583674

PATIENT
  Sex: Female
  Weight: 87 kg

DRUGS (6)
  1. BEVACIZUMAB [Suspect]
     Dosage: TEMPORARILY INTERUPTED. DATE OF LAST DOSE PRIOR TO SAE: 06 AUGUST 2008.
     Route: 042
     Dates: start: 20080515, end: 20080806
  2. BEVACIZUMAB [Suspect]
     Route: 042
  3. PACLITAXEL [Concomitant]
     Indication: BREAST CANCER
     Dosage: DATE OF LAST DOSE PRIOR TO SAE: 06 AUGUST 2008.
     Route: 042
     Dates: start: 20080315
  4. CONCOR [Concomitant]
     Dosage: TDD REPORTED AS: 2.5 X 3
     Dates: start: 20080818
  5. AMLODIPINE [Concomitant]
     Dates: start: 20080818
  6. NEXIUM [Concomitant]
     Dates: start: 20080818

REACTIONS (3)
  - ENDOCARDITIS [None]
  - SEPSIS [None]
  - VENOUS THROMBOSIS LIMB [None]
